FAERS Safety Report 7303412-1 (Version None)
Quarter: 2011Q1

REPORT INFORMATION
  Report Type: 
  Country: None (occurrence: None)
  Receive Date: 20110221
  Receipt Date: 20110207
  Transmission Date: 20110831
  Serious: Yes (Other)
  Sender: FDA-Public Use
  Company Number: US-ELI_LILLY_AND_COMPANY-US201008005151

PATIENT
  Sex: Female

DRUGS (8)
  1. FEXOFENADINE [Concomitant]
     Dosage: 60 MG, DAILY (1/D)
  2. VITAMIN B-12 [Concomitant]
     Dosage: 2500 UG, DAILY (1/D)
  3. FISH OIL [Concomitant]
     Dosage: 1200 MG, DAILY (1/D)
  4. FORTEO [Suspect]
     Indication: OSTEOPOROSIS
     Dosage: 20 UG, DAILY (1/D)
     Dates: start: 20100101
  5. LAMOTRIGINE [Concomitant]
     Dosage: 100 MG, 2/D
  6. TOPIRAMATE [Concomitant]
     Dosage: 100 D/F, 2/D
  7. CALCIUM [Concomitant]
     Dosage: 600 MG, 3/D
  8. MULTIVITAMIN [Concomitant]
     Dosage: 1000 IU, UNK

REACTIONS (3)
  - NEPHROLITHIASIS [None]
  - DIZZINESS [None]
  - POLYP [None]
